FAERS Safety Report 7226208-8 (Version None)
Quarter: 2011Q1

REPORT INFORMATION
  Report Type: 
  Country: None (occurrence: None)
  Receive Date: 20110114
  Receipt Date: 20101231
  Transmission Date: 20110831
  Serious: Yes (Other)
  Sender: FDA-Public Use
  Company Number: PHEH2009US02428

PATIENT
  Sex: Female

DRUGS (43)
  1. CIPRO [Concomitant]
     Dosage: 500 MG, BID
  2. VICODIN [Concomitant]
  3. LOVENOX [Concomitant]
  4. PROPRANOLOL [Concomitant]
  5. CELECOXIB [Concomitant]
  6. ALDACTONE [Concomitant]
  7. MOBIC [Concomitant]
  8. DECADRON [Concomitant]
  9. HYDROCODONE [Concomitant]
  10. AZITHROMYCIN [Concomitant]
  11. ERYTHROMYCIN [Concomitant]
  12. PERCOCET [Concomitant]
  13. VISTARIL [Concomitant]
  14. ELAVIL [Concomitant]
  15. RABEPRAZOLE SODIUM [Concomitant]
  16. AREDIA [Suspect]
     Indication: MULTIPLE MYELOMA
     Dosage: UNK
     Dates: end: 20070101
  17. FUROSEMIDE [Concomitant]
  18. ASPIRIN [Concomitant]
  19. RANITIDINE [Concomitant]
  20. DEXAMETHASONE [Concomitant]
  21. PREDNISONE [Concomitant]
     Dosage: UNK
     Dates: end: 20050501
  22. OMEPRAZOLE [Concomitant]
  23. MORPHINE [Concomitant]
  24. FERROUS GLUCONATE [Concomitant]
  25. QUININE [Concomitant]
  26. PRILOSEC [Concomitant]
  27. ZITHROMAX [Concomitant]
  28. ONDANSETRON [Concomitant]
  29. AMITRIPTYLINE HCL [Concomitant]
  30. CLINDAMYCIN [Concomitant]
     Dosage: 300 MG, UNK
  31. PROMETHAZINE [Concomitant]
  32. KENALOG [Concomitant]
  33. THALIDOMIDE [Concomitant]
     Dosage: UNK
     Dates: start: 20041101, end: 20070101
  34. SPIRONOLACTONE [Concomitant]
  35. PERIDEX [Concomitant]
  36. OXYCODONE [Concomitant]
  37. HYDROMORPHONE HCL [Concomitant]
  38. METHADONE HCL [Concomitant]
  39. TORADOL [Concomitant]
  40. MS CONTIN [Concomitant]
  41. METRONIDAZOLE [Concomitant]
  42. MAXALT [Concomitant]
  43. HYDROXYCHLOROQUINE SULFATE [Concomitant]

REACTIONS (36)
  - PNEUMONIA [None]
  - DISCOMFORT [None]
  - DEFORMITY [None]
  - SLEEP APNOEA SYNDROME [None]
  - FIBROMYALGIA [None]
  - PAIN [None]
  - EATING DISORDER [None]
  - ANXIETY [None]
  - ANHEDONIA [None]
  - PAIN IN JAW [None]
  - PERIODONTAL DISEASE [None]
  - DENTAL CARIES [None]
  - SINUSITIS [None]
  - ASTHENIA [None]
  - MUSCULOSKELETAL PAIN [None]
  - SWELLING FACE [None]
  - OSTEONECROSIS OF JAW [None]
  - OSTEOMYELITIS [None]
  - NEUROPATHY PERIPHERAL [None]
  - LIFE EXPECTANCY SHORTENED [None]
  - INJURY [None]
  - PHYSICAL DISABILITY [None]
  - TOOTH ABSCESS [None]
  - GASTROOESOPHAGEAL REFLUX DISEASE [None]
  - EMOTIONAL DISTRESS [None]
  - ARNOLD-CHIARI MALFORMATION [None]
  - PERONEAL NERVE PALSY [None]
  - TRISMUS [None]
  - PYURIA [None]
  - CERVICAL DYSPLASIA [None]
  - GINGIVITIS [None]
  - PAROTITIS [None]
  - ROTATOR CUFF SYNDROME [None]
  - TOOTH LOSS [None]
  - FRACTURE [None]
  - URINARY TRACT INFECTION [None]
